FAERS Safety Report 20166918 (Version 1)
Quarter: 2021Q4

REPORT INFORMATION
  Report Type: Spontaneous
  Country: CN (occurrence: CN)
  Receive Date: 20211209
  Receipt Date: 20211209
  Transmission Date: 20220303
  Serious: Yes (Other)
  Sender: FDA-Public Use
  Company Number: CN-PFIZER INC-202101699088

PATIENT
  Age: 48 Year
  Sex: Male

DRUGS (1)
  1. METHOTREXATE [Suspect]
     Active Substance: METHOTREXATE
     Indication: Angiocentric lymphoma
     Dosage: 5 G, 3X/DAY
     Route: 041
     Dates: start: 20211002, end: 20211002

REACTIONS (19)
  - Myelosuppression [Unknown]
  - Tumour lysis syndrome [Unknown]
  - Atrial fibrillation [Unknown]
  - Hepatic failure [Unknown]
  - Renal failure [Unknown]
  - Gastrointestinal haemorrhage [Unknown]
  - Granulocyte count decreased [Unknown]
  - Drug clearance decreased [Unknown]
  - Chest discomfort [Unknown]
  - Dyspnoea [Unknown]
  - Cough [Unknown]
  - Productive cough [Unknown]
  - Oropharyngeal pain [Unknown]
  - Infection [Unknown]
  - Haemoptysis [Unknown]
  - Electrolyte imbalance [Unknown]
  - Coagulopathy [Unknown]
  - Blood glucose increased [Unknown]
  - Blood pressure increased [Unknown]

NARRATIVE: CASE EVENT DATE: 20211001
